FAERS Safety Report 12991790 (Version 3)
Quarter: 2018Q3

REPORT INFORMATION
  Report Type: Spontaneous
  Country: US (occurrence: US)
  Receive Date: 20161201
  Receipt Date: 20180705
  Transmission Date: 20181010
  Serious: Yes (Other)
  Sender: FDA-Public Use
  Company Number: US-BRACCO-014156

PATIENT
  Age: 34 Year
  Sex: Female

DRUGS (2)
  1. GADOLINIUM [Suspect]
     Active Substance: GADOLINIUM
     Indication: NUCLEAR MAGNETIC RESONANCE IMAGING
     Dosage: UNK, SINGLE
  2. MULTIHANCE [Suspect]
     Active Substance: GADOBENATE DIMEGLUMINE
     Indication: NUCLEAR MAGNETIC RESONANCE IMAGING
     Route: 042
     Dates: start: 20160525, end: 20160525

REACTIONS (57)
  - Amnesia [Unknown]
  - Body temperature abnormal [Unknown]
  - Osteoporosis [Unknown]
  - Alopecia [Unknown]
  - Paraesthesia [Not Recovered/Not Resolved]
  - Internal injury [Unknown]
  - Muscle tightness [Not Recovered/Not Resolved]
  - Weight decreased [Unknown]
  - Pain [Not Recovered/Not Resolved]
  - Muscle spasms [Unknown]
  - Thrombophlebitis [Not Recovered/Not Resolved]
  - Tremor [Unknown]
  - Hypersensitivity [Unknown]
  - Urine analysis abnormal [Not Recovered/Not Resolved]
  - Cognitive disorder [Unknown]
  - Burning sensation [Not Recovered/Not Resolved]
  - Pain [Unknown]
  - Dyspnoea [Unknown]
  - Breast pain [Not Recovered/Not Resolved]
  - Arrhythmia [Unknown]
  - Pain in extremity [Not Recovered/Not Resolved]
  - Bone pain [Not Recovered/Not Resolved]
  - Fatigue [Unknown]
  - Dizziness [Unknown]
  - Nausea [Unknown]
  - Blindness transient [Recovered/Resolved]
  - Eye pain [Not Recovered/Not Resolved]
  - Renal injury [Unknown]
  - Injury [Unknown]
  - Tinnitus [Unknown]
  - Hypoglycaemia [None]
  - Nail discolouration [Unknown]
  - Amnesia [Not Recovered/Not Resolved]
  - Confusional state [Not Recovered/Not Resolved]
  - Goitre [Not Recovered/Not Resolved]
  - Arthralgia [Not Recovered/Not Resolved]
  - Confusional state [Unknown]
  - Rash [Unknown]
  - Gadolinium deposition disease [Unknown]
  - Thrombosis [Not Recovered/Not Resolved]
  - Skin tightness [Not Recovered/Not Resolved]
  - Feeling cold [Not Recovered/Not Resolved]
  - Inflammation [Unknown]
  - Mental status changes [Unknown]
  - Sensory disturbance [Not Recovered/Not Resolved]
  - Myalgia [Not Recovered/Not Resolved]
  - Hypoaesthesia [Not Recovered/Not Resolved]
  - Headache [Not Recovered/Not Resolved]
  - Infusion site extravasation [Unknown]
  - Skin discolouration [Not Recovered/Not Resolved]
  - Vitreous floaters [Not Recovered/Not Resolved]
  - Balance disorder [Not Recovered/Not Resolved]
  - Scleral discolouration [Unknown]
  - Mass [Unknown]
  - Muscular weakness [Not Recovered/Not Resolved]
  - Limb discomfort [Not Recovered/Not Resolved]
  - Asthenia [Unknown]

NARRATIVE: CASE EVENT DATE: 2016
